FAERS Safety Report 5078154-6 (Version None)
Quarter: 2006Q3

REPORT INFORMATION
  Report Type: 
  Country: None (occurrence: None)
  Receive Date: 20060720
  Receipt Date: 20060228
  Transmission Date: 20061208
  Serious: Yes (Other)
  Sender: FDA-Public Use
  Company Number: 2006MP000300

PATIENT
  Age: 74 Year
  Sex: Female

DRUGS (8)
  1. AGGRASTAT [Suspect]
     Indication: ANGINA UNSTABLE
     Dosage: IV
     Route: 042
     Dates: start: 20060120, end: 20060122
  2. ENOXAPARIN SODIUM [Suspect]
     Indication: ANGINA UNSTABLE
     Dosage: 60 MG; BID ;SC
     Route: 058
     Dates: start: 20060116, end: 20060122
  3. ASPIRIN [Concomitant]
  4. ATENOLOL [Concomitant]
  5. CLOPIDOGREL BISULFATE [Concomitant]
  6. OMEPRAZOLE [Concomitant]
  7. OMEPRAZOLE MAGNESIUM [Concomitant]
  8. PERINDOPRIL ERBUMINE [Concomitant]

REACTIONS (1)
  - THROMBOCYTOPENIA [None]
